FAERS Safety Report 23281005 (Version 2)
Quarter: 2024Q1

REPORT INFORMATION
  Report Type: Spontaneous
  Country: US (occurrence: US)
  Receive Date: 20231211
  Receipt Date: 20240320
  Transmission Date: 20240409
  Serious: No
  Sender: FDA-Public Use
  Company Number: US-NOVEN PHARMACEUTICALS, INC.-2023-NOV-US000839

PATIENT
  Sex: Female

DRUGS (1)
  1. ESTRADIOL [Suspect]
     Active Substance: ESTRADIOL
     Indication: Menopause
     Dosage: 0.0375 MG, SUNDAY AND WEDNESDAY
     Route: 062

REACTIONS (3)
  - Product administration error [Recovered/Resolved]
  - Product adhesion issue [Recovered/Resolved]
  - No adverse event [Unknown]
